FAERS Safety Report 16523430 (Version 2)
Quarter: 2024Q1

REPORT INFORMATION
  Report Type: Spontaneous
  Country: BR (occurrence: BR)
  Receive Date: 20190703
  Receipt Date: 20240131
  Transmission Date: 20240410
  Serious: Yes (Other)
  Sender: FDA-Public Use
  Company Number: BR-ABBVIE-19K-020-2840779-00

PATIENT

DRUGS (1)
  1. HUMIRA [Suspect]
     Active Substance: ADALIMUMAB
     Indication: Product used for unknown indication
     Route: 058

REACTIONS (7)
  - Dizziness [Unknown]
  - Pallor [Unknown]
  - Coating in mouth [Unknown]
  - Dry mouth [Unknown]
  - Tinnitus [Unknown]
  - Heart rate increased [Unknown]
  - Pain [Unknown]
